FAERS Safety Report 24448422 (Version 1)
Quarter: 2024Q4

REPORT INFORMATION
  Report Type: Spontaneous
  Country: US (occurrence: US)
  Receive Date: 20241017
  Receipt Date: 20241017
  Transmission Date: 20250115
  Serious: No
  Sender: BRISTOL-MYERS SQUIBB COMPANY
  Company Number: US-BRISTOL-MYERS SQUIBB COMPANY-2024-163421

PATIENT
  Age: 68 Year
  Sex: Male

DRUGS (2)
  1. SPRYCEL [Suspect]
     Active Substance: DASATINIB
     Indication: Chronic myeloid leukaemia
     Route: 048
     Dates: start: 202408
  2. IMATINIB MESYLATE [Concomitant]
     Active Substance: IMATINIB MESYLATE
     Indication: Product used for unknown indication

REACTIONS (1)
  - Headache [Unknown]
